FAERS Safety Report 5848834-0 (Version None)
Quarter: 2008Q3

REPORT INFORMATION
  Report Type: 
  Country: None (occurrence: None)
  Receive Date: 20080818
  Receipt Date: 20080806
  Transmission Date: 20090109
  Serious: Yes (Death, Hospitalization, Other)
  Sender: FDA-Public Use
  Company Number: US-PFIZER INC-2005135070

PATIENT
  Sex: Male

DRUGS (8)
  1. NEURONTIN [Suspect]
     Indication: BACK PAIN
     Route: 048
  2. NEURONTIN [Suspect]
     Indication: BIPOLAR DISORDER
  3. ALPRAZOLAM [Suspect]
  4. ALL OTHER THERAPEUTIC PRODUCTS [Suspect]
  5. WELLBUTRIN SR [Concomitant]
  6. ZOLOFT [Concomitant]
  7. ZYPREXA [Concomitant]
  8. PRILOSEC [Concomitant]

REACTIONS (8)
  - BACK PAIN [None]
  - COMPLETED SUICIDE [None]
  - DEPRESSION [None]
  - DRUG INEFFECTIVE [None]
  - DRUG TOXICITY [None]
  - OVERDOSE [None]
  - SUBSTANCE ABUSE [None]
  - SUICIDAL IDEATION [None]
